FAERS Safety Report 16236088 (Version 2)
Quarter: 2019Q2

REPORT INFORMATION
  Report Type: Spontaneous
  Country: FR (occurrence: FR)
  Receive Date: 20190425
  Receipt Date: 20190506
  Transmission Date: 20190711
  Serious: Yes (Other)
  Sender: FDA-Public Use
  Company Number: FR-AUROBINDO-AUR-APL-2019-021525

PATIENT

DRUGS (3)
  1. TRANXENE [Concomitant]
     Active Substance: CLORAZEPATE DIPOTASSIUM
     Indication: DEPRESSION
     Dosage: 30 MILLIGRAM, DAILY
     Route: 048
     Dates: start: 2010
  2. DULOXETINE ARROW 60 MG GASTRO RESISTANT CAPSULES [Suspect]
     Active Substance: DULOXETINE
     Indication: DEPRESSION
     Dosage: 60 MILLIGRAM, DAILY
     Route: 048
     Dates: start: 20181122
  3. KARDEGIC [Concomitant]
     Active Substance: ASPIRIN DL-LYSINE
     Indication: ISCHAEMIC STROKE
     Dosage: 160 MILLIGRAM, DAILY
     Route: 048
     Dates: start: 2010

REACTIONS (20)
  - Dry mouth [Recovered/Resolved]
  - Feeling drunk [Recovered/Resolved]
  - Urine odour abnormal [Recovered/Resolved]
  - Insomnia [Recovered/Resolved]
  - Depressed mood [Recovered/Resolved]
  - Flatulence [Recovered/Resolved]
  - Muscle spasms [Recovered/Resolved]
  - Constipation [Recovered/Resolved]
  - Pharyngeal paraesthesia [Recovered/Resolved]
  - Feeling cold [Recovered/Resolved]
  - Vertigo [Recovered/Resolved]
  - Hot flush [Recovered/Resolved]
  - Malaise [Recovered/Resolved]
  - Myalgia [Recovered/Resolved]
  - Gait disturbance [Recovered/Resolved]
  - Decreased appetite [Recovered/Resolved]
  - Tachycardia [Recovered/Resolved]
  - Muscular weakness [Recovered/Resolved]
  - Apathy [Recovered/Resolved]
  - Fatigue [Recovered/Resolved]

NARRATIVE: CASE EVENT DATE: 20181123
